FAERS Safety Report 13160101 (Version 3)
Quarter: 2017Q1

REPORT INFORMATION
  Report Type: Spontaneous
  Country: US (occurrence: US)
  Receive Date: 20170127
  Receipt Date: 20170227
  Transmission Date: 20170428
  Serious: Yes (Hospitalization, Disabling, Other)
  Sender: FDA-Public Use
  Company Number: US-SAOL THERAPEUTICS-2017SAO00155

PATIENT
  Age: 19 Year
  Sex: Male
  Weight: 75.74 kg

DRUGS (22)
  1. BACLOFEN. [Suspect]
     Active Substance: BACLOFEN
     Dosage: 554 ?G, \DAY
     Route: 037
  2. AMBIEN [Concomitant]
     Active Substance: ZOLPIDEM TARTRATE
     Dosage: 5 MG, 1X/DAY
  3. MIRALAX [Concomitant]
     Active Substance: POLYETHYLENE GLYCOL 3350
     Dosage: 5 ML, 2X/DAY
  4. BACLOFEN. [Concomitant]
     Active Substance: BACLOFEN
     Dosage: 10 MG, UP TO 3X/DAY
     Route: 048
  5. CALCIUM + D [Concomitant]
     Active Substance: CALCIUM\VITAMIN D
     Dosage: 500 MG, 2X/DAY
  6. BOTOX [Concomitant]
     Active Substance: ONABOTULINUMTOXINA
     Dosage: 400 UNITS
  7. BACLOFEN. [Suspect]
     Active Substance: BACLOFEN
     Indication: SPINAL CORD INJURY CERVICAL
     Dosage: 740 ?G, \DAY
     Route: 037
  8. AMPHETAMINE [Concomitant]
     Active Substance: AMPHETAMINE
     Dosage: 10 MG, 2X/DAY
  9. ALENDRONATE [Concomitant]
     Active Substance: ALENDRONATE SODIUM
     Dosage: 70 MG, 1X/WEEK
  10. GABAPENTIN. [Concomitant]
     Active Substance: GABAPENTIN
     Dosage: 400 MG, 2X/DAY
  11. FENTANYL. [Concomitant]
     Active Substance: FENTANYL
     Dosage: 25 ?G, EVERY 72 HOURS
  12. AMITRIPTYLINE [Concomitant]
     Active Substance: AMITRIPTYLINE
     Dosage: 25 MG, 1X/DAY
  13. LIDODERM [Concomitant]
     Active Substance: LIDOCAINE
     Dosage: 2 DOSAGE UNITS, AS NEEDED
     Route: 062
  14. ENEMEEZ [Concomitant]
     Active Substance: DOCUSATE SODIUM
     Dosage: UNK, 1X/DAY
  15. RELISTOR [Concomitant]
     Active Substance: METHYLNALTREXONE BROMIDE
     Dosage: UNK, 1X/DAY
  16. CRANBERRY PILLS [Concomitant]
     Dosage: UNK, 2X/DAY
  17. OXY IR [Concomitant]
     Active Substance: OXYCODONE HYDROCHLORIDE
     Dosage: 5 MG, 4X/DAY
  18. METHENAMINE [Concomitant]
     Active Substance: METHENAMINE
     Dosage: 1 G, 2X/DAY
  19. BACLOFEN. [Suspect]
     Active Substance: BACLOFEN
     Dosage: 821 ?G, \DAY
     Route: 037
  20. VALIUM [Concomitant]
     Active Substance: DIAZEPAM
     Dosage: 5 MG, UP TO 1X/DAY
     Route: 048
  21. DOCUSATE [Concomitant]
     Active Substance: DOCUSATE
     Dosage: 100 MG, 2X/DAY
  22. MINERAL OIL. [Concomitant]
     Active Substance: MINERAL OIL
     Dosage: UNK, AS NEEDED

REACTIONS (17)
  - Decubitus ulcer [Unknown]
  - Medical device site pain [Recovered/Resolved]
  - Osteomyelitis [Unknown]
  - Nausea [Unknown]
  - Complication associated with device [Unknown]
  - Muscle spasticity [Unknown]
  - Therapy non-responder [Unknown]
  - Fall [Unknown]
  - Femur fracture [Unknown]
  - Abdominal pain [Unknown]
  - Activities of daily living impaired [Unknown]
  - Hypertonia [Recovered/Resolved]
  - Anxiety [Unknown]
  - Pain [Unknown]
  - Stress [Unknown]
  - Oedema peripheral [Unknown]
  - Clonus [Unknown]

NARRATIVE: CASE EVENT DATE: 2012
